FAERS Safety Report 4621160-3 (Version None)
Quarter: 2005Q1

REPORT INFORMATION
  Report Type: 
  Country: None (occurrence: None)
  Receive Date: 20050328
  Receipt Date: 20050317
  Transmission Date: 20050727
  Serious: Yes (Hospitalization)
  Sender: FDA-Public Use
  Company Number: 2005PK00476

PATIENT
  Age: 58 Year
  Sex: Male

DRUGS (9)
  1. NEXIUM [Suspect]
     Dosage: 40 MG DAILY PO
     Route: 048
     Dates: start: 20050212, end: 20050219
  2. MEPHANOL-300 [Suspect]
     Dosage: 300 MG DAILY PO
     Route: 048
     Dates: start: 20050219, end: 20050224
  3. IMUREK [Suspect]
     Dosage: 75 MG DAILY PO
     Route: 048
     Dates: end: 20050304
  4. SANDIMMUNE [Concomitant]
  5. NORVASC [Concomitant]
  6. LOGROTON [Concomitant]
  7. LESCOL [Concomitant]
  8. SYMBICORT TURBUHALER   DRACO [Concomitant]
  9. ASPIRIN [Concomitant]

REACTIONS (6)
  - APLASTIC ANAEMIA [None]
  - ASTHENIA [None]
  - BONE MARROW TOXICITY [None]
  - DRUG INTERACTION [None]
  - DYSPNOEA [None]
  - OVERDOSE [None]
